FAERS Safety Report 7660099-6 (Version None)
Quarter: 2011Q3

REPORT INFORMATION
  Report Type: 
  Country: None (occurrence: None)
  Receive Date: 20110805
  Receipt Date: 20110722
  Transmission Date: 20111222
  Serious: Yes (Hospitalization, Other)
  Sender: FDA-Public Use
  Company Number: PHHY2011BR29559

PATIENT
  Sex: Female
  Weight: 78 kg

DRUGS (5)
  1. DIOVAN [Suspect]
     Indication: HYPERTENSION
     Dosage: 320 MG, UNK
     Route: 048
  2. INSULIN [Concomitant]
     Indication: DIABETES MELLITUS
     Dosage: 30 MG, 1 APPLICATION TWICE A DAY
     Route: 058
  3. INSULIN [Concomitant]
     Dosage: 10 MG, 1 APPLICATION TWICE A DAY
     Route: 058
  4. CLONIDINE HYDROCHLORIDE [Concomitant]
     Indication: HYPERTENSION
     Dosage: 100 MG, (1 TABLET THREE TIMES A DAY)
     Route: 048
  5. LEVOTHYROXINE SODIUM [Concomitant]
     Indication: THYROID DISORDER
     Dosage: 1 DF, QD
     Route: 048

REACTIONS (3)
  - CARDIAC DISORDER [None]
  - ERYSIPELAS [None]
  - URINARY TRACT INFECTION [None]
